FAERS Safety Report 7282842-0 (Version None)
Quarter: 2011Q1

REPORT INFORMATION
  Report Type: 
  Country: None (occurrence: None)
  Receive Date: 20110209
  Receipt Date: 20110127
  Transmission Date: 20110831
  Serious: Yes (Hospitalization, Other)
  Sender: FDA-Public Use
  Company Number: PHFR2010GB06063

PATIENT
  Sex: Male

DRUGS (4)
  1. SULPIRIDE [Concomitant]
     Dosage: 400 MG, QD
  2. CLOZARIL [Suspect]
     Indication: SCHIZOPHRENIA
     Dosage: UNK MG, QD
     Route: 048
     Dates: start: 20050610
  3. OMACOR [Concomitant]
     Indication: SCHIZOPHRENIA
     Dosage: UNK
  4. HYOSCINE HBR HYT [Concomitant]
     Indication: SALIVARY HYPERSECRETION
     Dosage: 300 UG, QD

REACTIONS (6)
  - NEUTROPENIA [None]
  - NASOPHARYNGITIS [None]
  - PSYCHOTIC DISORDER [None]
  - WHITE BLOOD CELL COUNT DECREASED [None]
  - VIRAL INFECTION [None]
  - VOMITING [None]
